FAERS Safety Report 8042926-6 (Version None)
Quarter: 2012Q1

REPORT INFORMATION
  Report Type: 
  Country: None (occurrence: None)
  Receive Date: 20120112
  Receipt Date: 20120110
  Transmission Date: 20120608
  Serious: Yes (Other)
  Sender: FDA-Public Use
  Company Number: US-TEVA-313609USA

PATIENT
  Sex: Male

DRUGS (4)
  1. CLARAVIS [Suspect]
     Dosage: 120 MILLIGRAM;
     Route: 048
  2. EXCEDRIN                           /00214201/ [Concomitant]
  3. MOMETASONE FUROATE [Concomitant]
  4. CETIRIZINE HCL [Concomitant]

REACTIONS (3)
  - CONVULSION [None]
  - DEPRESSION [None]
  - SUICIDAL IDEATION [None]
